FAERS Safety Report 25427890 (Version 2)
Quarter: 2025Q3

REPORT INFORMATION
  Report Type: Report from Study
  Country: US (occurrence: US)
  Receive Date: 20250612
  Receipt Date: 20250911
  Transmission Date: 20251020
  Serious: No
  Sender: SUNOVION
  Company Number: US-SMPA-2025SPA006290AA

PATIENT
  Age: 82 Year
  Sex: Male

DRUGS (7)
  1. ORGOVYX [Suspect]
     Active Substance: RELUGOLIX
     Indication: Prostate cancer
     Dosage: 360 MG, SINGLE
     Route: 048
     Dates: start: 20250512, end: 20250512
  2. ORGOVYX [Suspect]
     Active Substance: RELUGOLIX
     Dosage: 120 MG, QD
     Route: 048
     Dates: start: 20250513
  3. Amlodipin/valsartan/hydrochlorothiazid elpen [Concomitant]
  4. ATENOLOL [Concomitant]
     Active Substance: ATENOLOL
  5. CIALIS [Concomitant]
     Active Substance: TADALAFIL
  6. TAMSULOSIN [Concomitant]
     Active Substance: TAMSULOSIN
  7. XARELTO [Concomitant]
     Active Substance: RIVAROXABAN

REACTIONS (2)
  - Urine odour abnormal [Unknown]
  - Constipation [Unknown]
